FAERS Safety Report 10504561 (Version 1)
Quarter: 2014Q4

REPORT INFORMATION
  Report Type: Spontaneous
  Country: US (occurrence: US)
  Receive Date: 20141008
  Receipt Date: 20141008
  Transmission Date: 20150528
  Serious: No
  Sender: FDA-Public Use
  Company Number: US-B.I. PHARMACEUTICALS,INC./RIDGEFIELD-2014-BI-46837BP

PATIENT
  Age: 42 Year
  Sex: Male
  Weight: 95.25 kg

DRUGS (8)
  1. CYCLOBENZAPRINE [Concomitant]
     Active Substance: CYCLOBENZAPRINE
     Indication: INTERVERTEBRAL DISC DEGENERATION
     Dosage: 20 MG
     Route: 048
     Dates: start: 201307
  2. GAPAPENTIN [Concomitant]
     Indication: INTERVERTEBRAL DISC DEGENERATION
     Dosage: 2400 MG
     Route: 048
     Dates: start: 201307
  3. ALBUTEROL. [Concomitant]
     Active Substance: ALBUTEROL
     Indication: ASTHMA
     Dosage: 6 PUF
     Route: 055
     Dates: start: 1999
  4. NAPROXEN. [Concomitant]
     Active Substance: NAPROXEN
     Indication: INTERVERTEBRAL DISC DEGENERATION
     Dosage: 750 MG
     Route: 048
     Dates: start: 201406
  5. CITALOPRAM [Concomitant]
     Active Substance: CITALOPRAM HYDROBROMIDE
     Indication: DEPRESSION
     Dosage: 40 MG
     Route: 048
     Dates: start: 201405
  6. FAMOTIDINE. [Concomitant]
     Active Substance: FAMOTIDINE
     Indication: GASTROOESOPHAGEAL REFLUX DISEASE
     Dosage: 20 MG
     Route: 048
     Dates: start: 201407
  7. SPIRIVA [Suspect]
     Active Substance: TIOTROPIUM BROMIDE MONOHYDRATE
     Indication: CHRONIC OBSTRUCTIVE PULMONARY DISEASE
     Dosage: 18 MCG
     Route: 055
     Dates: start: 201407, end: 20140928
  8. BUSPIRONE [Concomitant]
     Active Substance: BUSPIRONE HYDROCHLORIDE
     Indication: DEPRESSION
     Dosage: 45 MG
     Route: 048
     Dates: start: 201405

REACTIONS (3)
  - Urine flow decreased [Not Recovered/Not Resolved]
  - Dehydration [Not Recovered/Not Resolved]
  - Renal pain [Not Recovered/Not Resolved]

NARRATIVE: CASE EVENT DATE: 201407
